FAERS Safety Report 11683253 (Version 2)
Quarter: 2015Q4

REPORT INFORMATION
  Report Type: Spontaneous
  Country: US (occurrence: US)
  Receive Date: 20151029
  Receipt Date: 20151223
  Transmission Date: 20160304
  Serious: Yes (Hospitalization, Other)
  Sender: FDA-Public Use
  Company Number: US-DSJP-DSU-2015-129235

PATIENT

DRUGS (3)
  1. MICARDIS [Concomitant]
     Active Substance: TELMISARTAN
     Indication: PRODUCT USED FOR UNKNOWN INDICATION
     Dosage: 80/25 MG, QD
     Route: 048
     Dates: start: 20110303, end: 2012
  2. AZOR [Suspect]
     Active Substance: AMLODIPINE BESYLATE\OLMESARTAN MEDOXOMIL
     Indication: HYPERTENSION
     Dosage: 40/10 MG, QD
     Route: 048
     Dates: end: 2015
  3. DILANTIN [Concomitant]
     Active Substance: PHENYTOIN
     Indication: PRODUCT USED FOR UNKNOWN INDICATION
     Dosage: 100 MG, UNK
     Dates: start: 2010

REACTIONS (6)
  - Diverticulitis [Unknown]
  - Malabsorption [Unknown]
  - Dizziness [Unknown]
  - Hepatic cyst [Unknown]
  - Haematochezia [Unknown]
  - Prerenal failure [Unknown]

NARRATIVE: CASE EVENT DATE: 20140204
